FAERS Safety Report 18400336 (Version 1)
Quarter: 2020Q4

REPORT INFORMATION
  Report Type: Spontaneous
  Country: US (occurrence: US)
  Receive Date: 20201019
  Receipt Date: 20201019
  Transmission Date: 20210114
  Serious: Yes (Other)
  Sender: FDA-Public Use
  Company Number: US-ALLERGAN-1946747US

PATIENT
  Age: 24 Year
  Sex: Male

DRUGS (3)
  1. ANTIDEPRESSANT [Concomitant]
     Active Substance: UNSPECIFIED INGREDIENT
  2. VRAYLAR [Suspect]
     Active Substance: CARIPRAZINE
     Indication: BIPOLAR DISORDER
     Dosage: 1.5 MG
     Route: 065
  3. UNKNOWN SSRI [Concomitant]
     Indication: SEIZURE

REACTIONS (1)
  - Seizure [Recovered/Resolved]
